FAERS Safety Report 5497386-6 (Version None)
Quarter: 2007Q4

REPORT INFORMATION
  Report Type: 
  Country: None (occurrence: None)
  Receive Date: 20071025
  Receipt Date: 20061220
  Transmission Date: 20080405
  Serious: No
  Sender: FDA-Public Use
  Company Number: US-BRISTOL-MYERS SQUIBB COMPANY-13619291

PATIENT
  Age: 64 Year
  Sex: Female

DRUGS (1)
  1. GLUCOPHAGE XR [Suspect]

REACTIONS (1)
  - POLLAKIURIA [None]
